FAERS Safety Report 7996332-0 (Version None)
Quarter: 2011Q4

REPORT INFORMATION
  Report Type: 
  Country: None (occurrence: None)
  Receive Date: 20111220
  Receipt Date: 20111207
  Transmission Date: 20120403
  Serious: Yes (Hospitalization)
  Sender: FDA-Public Use
  Company Number: US-ELI_LILLY_AND_COMPANY-US201107005778

PATIENT
  Sex: Female

DRUGS (4)
  1. MOBIC [Concomitant]
  2. VITAMIN TAB [Concomitant]
  3. FORTEO [Suspect]
     Indication: OSTEOPOROSIS
     Dosage: 20 UG, QD
     Dates: start: 20110123
  4. LIPITOR [Concomitant]

REACTIONS (8)
  - ARTHRALGIA [None]
  - SWELLING FACE [None]
  - CONTUSION [None]
  - EXCORIATION [None]
  - EPISTAXIS [None]
  - VERTEBROPLASTY [None]
  - FALL [None]
  - FACIAL BONES FRACTURE [None]
